FAERS Safety Report 21315391 (Version 1)
Quarter: 2022Q3

REPORT INFORMATION
  Report Type: Spontaneous
  Country: US (occurrence: None)
  Receive Date: 20220909
  Receipt Date: 20220909
  Transmission Date: 20221027
  Serious: No
  Sender: FDA-Public Use
  Company Number: US-ARIS GLOBAL-202112-2241

PATIENT
  Sex: Female

DRUGS (6)
  1. OXERVATE [Suspect]
     Active Substance: CENEGERMIN-BKBJ
     Indication: Neurotrophic keratopathy
     Route: 047
     Dates: start: 20211201
  2. REFRESH LACRI-LUBE [Concomitant]
     Active Substance: MINERAL OIL\PETROLATUM
  3. REPHRESH GEL/PF APP [Concomitant]
     Dosage: PREFILL APPLICATORS
  4. ALREX [Concomitant]
     Active Substance: LOTEPREDNOL ETABONATE
  5. TIMOLOL-DORZOLAMIDE [Concomitant]
     Dosage: 2 %-0.5 %
  6. XIIDRA [Concomitant]
     Active Substance: LIFITEGRAST

REACTIONS (2)
  - Periorbital pain [Unknown]
  - Eyelid pain [Unknown]
